FAERS Safety Report 9355769 (Version 1)
Quarter: 2013Q2

REPORT INFORMATION
  Report Type: Spontaneous
  Country: US (occurrence: US)
  Receive Date: 20130619
  Receipt Date: 20130619
  Transmission Date: 20140414
  Serious: Yes (Life-Threatening, Hospitalization)
  Sender: FDA-Public Use
  Company Number: US-NOVEN-13US007065

PATIENT
  Age: 46 Year
  Sex: Female

DRUGS (1)
  1. LITHIUM CARBONATE [Suspect]
     Indication: BIPOLAR DISORDER
     Dosage: UNK
     Route: 065

REACTIONS (10)
  - Acute respiratory distress syndrome [Recovering/Resolving]
  - Dyspnoea [Recovered/Resolved]
  - Toxicity to various agents [Recovered/Resolved]
  - Unresponsive to stimuli [Recovering/Resolving]
  - Hypotension [Recovered/Resolved]
  - Blood creatinine abnormal [Unknown]
  - Blood urea abnormal [Recovering/Resolving]
  - Blood sodium abnormal [Unknown]
  - Asthenia [Recovered/Resolved]
  - Diarrhoea [Recovered/Resolved]
